FAERS Safety Report 7553895-7 (Version None)
Quarter: 2011Q2

REPORT INFORMATION
  Report Type: 
  Country: None (occurrence: None)
  Receive Date: 20110614
  Receipt Date: 20110614
  Transmission Date: 20111010
  Serious: Yes (Hospitalization)
  Sender: FDA-Public Use
  Company Number: None

PATIENT
  Age: 29 Year
  Sex: Male
  Weight: 123.832 kg

DRUGS (1)
  1. NIMBEX [Suspect]
     Indication: ENDOTRACHEAL INTUBATION
     Dosage: 200 MG/100 ML AS DIRECTED IV DRIP
     Route: 041
     Dates: start: 20110421, end: 20110428

REACTIONS (3)
  - INCORRECT DRUG ADMINISTRATION DURATION [None]
  - PARALYSIS [None]
  - DRUG EFFECT PROLONGED [None]
